FAERS Safety Report 17843693 (Version 4)
Quarter: 2020Q4

REPORT INFORMATION
  Report Type: Spontaneous
  Country: US (occurrence: US)
  Receive Date: 20200531
  Receipt Date: 20201112
  Transmission Date: 20210113
  Serious: No
  Sender: FDA-Public Use
  Company Number: US-ASTRAZENECA-2020SE69650

PATIENT
  Age: 26823 Day
  Sex: Female

DRUGS (3)
  1. BYDUREON BCISE [Suspect]
     Active Substance: EXENATIDE
     Indication: BLOOD GLUCOSE ABNORMAL
     Route: 058
     Dates: start: 201912
  2. BYDUREON BCISE [Suspect]
     Active Substance: EXENATIDE
     Indication: TYPE 2 DIABETES MELLITUS
     Route: 058
     Dates: start: 201912
  3. TRESIBA [Concomitant]
     Active Substance: INSULIN DEGLUDEC
     Indication: BLOOD INSULIN ABNORMAL
     Route: 058

REACTIONS (6)
  - Incorrect dose administered by device [Unknown]
  - Device leakage [Unknown]
  - Intentional device misuse [Unknown]
  - Product dispensing error [Unknown]
  - Wrong technique in device usage process [Unknown]
  - Injection site haemorrhage [Unknown]

NARRATIVE: CASE EVENT DATE: 20200524
